FAERS Safety Report 24147838 (Version 1)
Quarter: 2024Q3

REPORT INFORMATION
  Report Type: Spontaneous
  Country: IN (occurrence: IN)
  Receive Date: 20240729
  Receipt Date: 20240729
  Transmission Date: 20241017
  Serious: Yes (Hospitalization)
  Sender: BEXIMCO PHARMACEUTICALS
  Company Number: IN-BEXIMCO-2024BEX00034

PATIENT
  Age: 58 Year
  Sex: Male

DRUGS (2)
  1. METFORMIN HYDROCHLORIDE [Suspect]
     Active Substance: METFORMIN HYDROCHLORIDE
     Dosage: 500 MG, 2X/DAY
  2. GLIMEPIRIDE [Suspect]
     Active Substance: GLIMEPIRIDE
     Dosage: 1 MG, 2X/DAY

REACTIONS (3)
  - Toxic encephalopathy [Recovered/Resolved]
  - Cytotoxic oedema [Recovered/Resolved]
  - Lactic acidosis [Recovered/Resolved]
